FAERS Safety Report 17453306 (Version 1)
Quarter: 2020Q1

REPORT INFORMATION
  Report Type: Spontaneous
  Country: US (occurrence: US)
  Receive Date: 20200224
  Receipt Date: 20200224
  Transmission Date: 20200409
  Serious: No
  Sender: FDA-Public Use
  Company Number: US-PERRIGO-19US006725

PATIENT
  Sex: Male
  Weight: 86.17 kg

DRUGS (2)
  1. BISOPROLOL [Concomitant]
     Active Substance: BISOPROLOL
     Indication: HEART RATE IRREGULAR
     Dosage: UNK
     Route: 065
  2. LOPERAMIDE HYDROCHLORIDE. [Suspect]
     Active Substance: LOPERAMIDE HYDROCHLORIDE
     Indication: DIARRHOEA
     Dosage: 4 MG AFTER 1ST LOOSE STOOL, 2 MG AFTER EACH SUBSEQUENT LOOSE STOOL, PRN
     Route: 048
     Dates: start: 2010, end: 20190518

REACTIONS (4)
  - Dysuria [Recovered/Resolved]
  - Micturition frequency decreased [Recovered/Resolved]
  - Expired product administered [Recovered/Resolved]
  - Incorrect product administration duration [Recovered/Resolved]

NARRATIVE: CASE EVENT DATE: 2010
